FAERS Safety Report 24629856 (Version 1)
Quarter: 2024Q4

REPORT INFORMATION
  Report Type: Spontaneous
  Country: FR (occurrence: FR)
  Receive Date: 20241118
  Receipt Date: 20241118
  Transmission Date: 20250115
  Serious: Yes (Hospitalization)
  Sender: TEVA
  Company Number: None

PATIENT
  Age: 62 Year
  Sex: Female

DRUGS (5)
  1. CLOZAPINE [Suspect]
     Active Substance: CLOZAPINE
     Indication: Wrong patient received product
     Route: 048
     Dates: start: 20240703, end: 20240703
  2. TROPATEPINE HYDROCHLORIDE [Suspect]
     Active Substance: TROPATEPINE HYDROCHLORIDE
     Indication: Wrong patient received product
     Route: 048
     Dates: start: 20240703, end: 20240703
  3. ZUCLOPENTHIXOL [Suspect]
     Active Substance: ZUCLOPENTHIXOL
     Indication: Wrong patient received product
     Route: 048
     Dates: start: 20240703, end: 20240703
  4. LORAZEPAM [Suspect]
     Active Substance: LORAZEPAM
     Indication: Wrong patient received product
     Route: 048
     Dates: start: 20240703, end: 20240703
  5. VALPROATE SODIUM [Suspect]
     Active Substance: VALPROATE SODIUM
     Indication: Wrong patient received product
     Dosage: SUSTAINED-RELEASE FILM-COATED TABLET
     Route: 048
     Dates: start: 20240703, end: 20240703

REACTIONS (4)
  - Tachycardia [Recovering/Resolving]
  - Hypotension [Recovering/Resolving]
  - Hyperthermia [Recovering/Resolving]
  - Wrong patient received product [Recovering/Resolving]

NARRATIVE: CASE EVENT DATE: 20240703
